FAERS Safety Report 19171736 (Version 2)
Quarter: 2021Q3

REPORT INFORMATION
  Report Type: Report from Study
  Country: US (occurrence: US)
  Receive Date: 20210423
  Receipt Date: 20210706
  Transmission Date: 20211014
  Serious: No
  Sender: FDA-Public Use
  Company Number: US-SA-2021SA132840

PATIENT
  Age: 6 Year
  Sex: Female

DRUGS (8)
  1. CHILDREN CLARITIN ALLERGY [Concomitant]
     Active Substance: LORATADINE
  2. DUPILUMAB [Suspect]
     Active Substance: DUPILUMAB
     Indication: ECZEMA
     Dosage: 400 MG, 1X
     Route: 058
     Dates: start: 20210401, end: 20210401
  3. HYDROCORTISONE. [Concomitant]
     Active Substance: HYDROCORTISONE
  4. TRIAMCINOLONE ACETONIDE. [Concomitant]
     Active Substance: TRIAMCINOLONE ACETONIDE
  5. HYDROXYZINE HCL [Concomitant]
     Active Substance: HYDROXYZINE HYDROCHLORIDE
     Dosage: 10 MG
  6. DUPILUMAB [Suspect]
     Active Substance: DUPILUMAB
     Indication: DERMATITIS ATOPIC
     Dosage: 200 MG, QOW
     Route: 058
     Dates: start: 2021
  7. FLUOCINONIDE?E [Concomitant]
     Active Substance: FLUOCINONIDE
  8. AQUAPHORIL [Concomitant]
     Active Substance: XIPAMIDE

REACTIONS (3)
  - Injection site pain [Not Recovered/Not Resolved]
  - Product use issue [Unknown]
  - Injection site discomfort [Not Recovered/Not Resolved]

NARRATIVE: CASE EVENT DATE: 20210401
